FAERS Safety Report 12371521 (Version 1)
Quarter: 2016Q2

REPORT INFORMATION
  Report Type: Spontaneous
  Country: US (occurrence: US)
  Receive Date: 20160516
  Receipt Date: 20160516
  Transmission Date: 20160815
  Serious: No
  Sender: FDA-Public Use
  Company Number: US-ASTRAZENECA-2016SE36409

PATIENT
  Age: 50 Year
  Sex: Female

DRUGS (8)
  1. ALLEGRA [Concomitant]
     Active Substance: FEXOFENADINE HYDROCHLORIDE
  2. NEXIUM [Suspect]
     Active Substance: ESOMEPRAZOLE MAGNESIUM
     Dosage: GENERIC
     Route: 048
  3. EFFEXOR [Concomitant]
     Active Substance: VENLAFAXINE HYDROCHLORIDE
  4. TOPROL XL [Concomitant]
     Active Substance: METOPROLOL SUCCINATE
  5. GLEEVEC [Concomitant]
     Active Substance: IMATINIB MESYLATE
     Indication: MAST CELL ACTIVATION SYNDROME
  6. GLEEVEC [Concomitant]
     Active Substance: IMATINIB MESYLATE
     Indication: MAST CELL ACTIVATION SYNDROME
  7. RANITIDINE. [Concomitant]
     Active Substance: RANITIDINE
  8. SINGULAIR [Concomitant]
     Active Substance: MONTELUKAST SODIUM

REACTIONS (1)
  - Drug hypersensitivity [Unknown]
